FAERS Safety Report 9137246 (Version 1)
Quarter: 2013Q1

REPORT INFORMATION
  Report Type: Spontaneous
  Country: US (occurrence: US)
  Receive Date: 20130304
  Receipt Date: 20130304
  Transmission Date: 20140127
  Serious: No
  Sender: FDA-Public Use
  Company Number: US-ABBOTT-12P-163-0988662-00

PATIENT
  Sex: Male
  Weight: 74.46 kg

DRUGS (3)
  1. ANDROGEL [Suspect]
     Indication: BLOOD TESTOSTERONE DECREASED
     Dosage: PACKETS
     Dates: start: 2012
  2. UNKNOWN MEDICATION [Concomitant]
     Indication: THYROID DISORDER
  3. UNKNOWN MEDICATION [Concomitant]
     Indication: BLOOD PRESSURE

REACTIONS (2)
  - Heart rate increased [Unknown]
  - Dizziness [Unknown]
